FAERS Safety Report 4771054-8 (Version None)
Quarter: 2005Q3

REPORT INFORMATION
  Report Type: 
  Country: None (occurrence: None)
  Receive Date: 20050915
  Receipt Date: 20050906
  Transmission Date: 20060218
  Serious: Yes (Hospitalization, Other)
  Sender: FDA-Public Use
  Company Number: US-ABBOTT-05P-163-0310616-00

PATIENT
  Sex: Male
  Weight: 88.5 kg

DRUGS (2)
  1. CALCIJEX [Suspect]
     Indication: PROSTATE CANCER
     Route: 042
     Dates: start: 20050823
  2. IRESSA [Concomitant]
     Indication: PROSTATE CANCER
     Route: 048
     Dates: start: 20050726, end: 20050823

REACTIONS (4)
  - DYSPNOEA [None]
  - PAIN [None]
  - PURPURA [None]
  - RASH [None]
